FAERS Safety Report 18338644 (Version 1)
Quarter: 2020Q4

REPORT INFORMATION
  Report Type: Spontaneous
  Country: SE (occurrence: SE)
  Receive Date: 20201002
  Receipt Date: 20201002
  Transmission Date: 20210113
  Serious: Yes (Death)
  Sender: FDA-Public Use
  Company Number: SE-TEVA-2020-SE-1833264

PATIENT
  Age: 85 Year
  Sex: Female

DRUGS (15)
  1. RISPERIDONE. [Suspect]
     Active Substance: RISPERIDONE
     Indication: ANXIETY
     Dosage: 2 ST AT 08?1 ST AT 20
     Dates: start: 20200319
  2. OXYNORM [Concomitant]
     Active Substance: OXYCODONE HYDROCHLORIDE
     Dosage: VB
     Dates: start: 20191112
  3. ALENDRONIC ACID [Concomitant]
     Active Substance: ALENDRONIC ACID
     Dosage: 70 MG
     Dates: start: 20191125
  4. OMEPRAZOLE. [Concomitant]
     Active Substance: OMEPRAZOLE
     Dosage: 20 MG
     Dates: start: 20191125
  5. CILAXORAL [Concomitant]
     Active Substance: SODIUM PICOSULFATE
     Dosage: VB,
     Dates: start: 20191125
  6. KALCIPOS-D [Concomitant]
     Active Substance: CALCIUM CARBONATE\CHOLECALCIFEROL
     Dosage: STRENGTH 500MG / 500IE
     Dates: start: 20200319
  7. DUPHALAC [Concomitant]
     Active Substance: LACTULOSE
     Dosage: VB
     Dates: start: 20191112
  8. ZOPICLONE [Concomitant]
     Active Substance: ZOPICLONE
     Dosage: 7.5 MG
     Dates: start: 20200325
  9. OXASCAND [Concomitant]
     Active Substance: OXAZEPAM
     Dosage: VB
     Dates: start: 20200507
  10. FOLIC ACID, ANHYDROUS [Concomitant]
     Active Substance: FOLIC ACID
     Dosage: 5 MG
     Dates: start: 20200319
  11. IPREN [Concomitant]
     Active Substance: IBUPROFEN
     Dosage: VB
     Dates: start: 20191125
  12. BETOLVIDON [Concomitant]
     Active Substance: CYANOCOBALAMIN
     Dosage: 1 MG
     Dates: start: 20191125
  13. HALDOL [Concomitant]
     Active Substance: HALOPERIDOL
     Dosage: VB
     Dates: start: 20200507
  14. LOPERAMIDE [Concomitant]
     Active Substance: LOPERAMIDE
     Dosage: VB
     Dates: start: 20191125
  15. OXYCODONE DEPOT [Concomitant]
     Dosage: 5 MG
     Dates: start: 20191016

REACTIONS (1)
  - Pancreatitis acute [Fatal]

NARRATIVE: CASE EVENT DATE: 202008
